FAERS Safety Report 21702202 (Version 2)
Quarter: 2022Q4

REPORT INFORMATION
  Report Type: Spontaneous
  Country: BR (occurrence: BR)
  Receive Date: 20221208
  Receipt Date: 20221220
  Transmission Date: 20230113
  Serious: Yes (Other)
  Sender: FDA-Public Use
  Company Number: BR-JNJFOC-20221139767

PATIENT
  Age: 69 Year
  Sex: Female
  Weight: 51 kg

DRUGS (7)
  1. STELARA [Suspect]
     Active Substance: USTEKINUMAB
     Indication: Psoriatic arthropathy
     Route: 058
     Dates: start: 201907
  2. INDAPAMIDE [Concomitant]
     Active Substance: INDAPAMIDE
     Indication: Hypertension
     Dosage: 1, 5 MG
     Route: 048
     Dates: start: 2022
  3. NEOVITE MAX [Concomitant]
     Indication: Age-related macular degeneration
     Route: 048
     Dates: start: 2018
  4. LEVOTHYROXINE [Concomitant]
     Active Substance: LEVOTHYROXINE
     Indication: Goitre
     Route: 048
     Dates: start: 1985
  5. MESALAMINE [Concomitant]
     Active Substance: MESALAMINE
     Indication: Diverticulum
     Dosage: 1200MMX
     Route: 048
     Dates: start: 2012
  6. ROSUVASTATIN [Concomitant]
     Active Substance: ROSUVASTATIN
     Indication: Disease risk factor
     Route: 048
     Dates: start: 2021
  7. EZETIMIBE [Concomitant]
     Active Substance: EZETIMIBE
     Indication: Disease risk factor
     Route: 048
     Dates: start: 2021

REACTIONS (2)
  - Nerve compression [Not Recovered/Not Resolved]
  - Intervertebral disc protrusion [Not Recovered/Not Resolved]

NARRATIVE: CASE EVENT DATE: 20220801
